FAERS Safety Report 20410308 (Version 3)
Quarter: 2022Q1

REPORT INFORMATION
  Report Type: Spontaneous
  Country: IR (occurrence: IR)
  Receive Date: 20220201
  Receipt Date: 20220321
  Transmission Date: 20220424
  Serious: Yes (Hospitalization, Other)
  Sender: FDA-Public Use
  Company Number: IR-SA-2022SA026142

PATIENT
  Age: 42 Year
  Sex: Male

DRUGS (5)
  1. OXALIPLATIN [Suspect]
     Active Substance: OXALIPLATIN
     Dosage: 100 MG/M2
  2. GEMCITABINE HYDROCHLORIDE [Suspect]
     Active Substance: GEMCITABINE HYDROCHLORIDE
     Dosage: 1000 MG/M2
  3. SODIUM CHLORIDE [Concomitant]
     Active Substance: SODIUM CHLORIDE
     Indication: T-cell lymphoma
     Dosage: 500 ML
     Route: 042
     Dates: start: 2020
  4. GEMCITABINE [Concomitant]
     Active Substance: GEMCITABINE
     Indication: T-cell lymphoma
     Dosage: IN 500 ML NORMAL SALINE WITH THE RATE OF 10 MG/ M2/MIN
     Route: 042
     Dates: start: 2020
  5. DEXTROSE [Concomitant]
     Active Substance: DEXTROSE
     Indication: T-cell lymphoma
     Route: 042
     Dates: start: 2020

REACTIONS (5)
  - Asthenia [Recovered/Resolved]
  - Paraplegia [Recovered/Resolved with Sequelae]
  - Paraesthesia [Recovered/Resolved]
  - Peripheral sensory neuropathy [Recovering/Resolving]
  - Axonal and demyelinating polyneuropathy [Recovering/Resolving]

NARRATIVE: CASE EVENT DATE: 20210101
